FAERS Safety Report 19818801 (Version 1)
Quarter: 2021Q3

REPORT INFORMATION
  Report Type: Spontaneous
  Country: US (occurrence: US)
  Receive Date: 20210912
  Receipt Date: 20210912
  Transmission Date: 20211014
  Serious: No
  Sender: FDA-Public Use
  Company Number: US-ASTRAZENECA-2021A691495

PATIENT
  Age: 61 Year
  Sex: Female
  Weight: 70.3 kg

DRUGS (1)
  1. SYMBICORT [Suspect]
     Active Substance: BUDESONIDE\FORMOTEROL FUMARATE DIHYDRATE
     Indication: CHRONIC OBSTRUCTIVE PULMONARY DISEASE
     Dosage: 160/4.5 MCG, TWO PUFF BID
     Route: 055
     Dates: start: 2019

REACTIONS (7)
  - Dysphonia [Unknown]
  - Intentional device misuse [Not Recovered/Not Resolved]
  - Wheezing [Unknown]
  - Product packaging quantity issue [Unknown]
  - Product dose omission issue [Not Recovered/Not Resolved]
  - Dyspnoea [Unknown]
  - Wrong technique in device usage process [Not Recovered/Not Resolved]

NARRATIVE: CASE EVENT DATE: 2020
